FAERS Safety Report 15613360 (Version 3)
Quarter: 2019Q2

REPORT INFORMATION
  Report Type: Spontaneous
  Country: CA (occurrence: CA)
  Receive Date: 20181113
  Receipt Date: 20190429
  Transmission Date: 20190711
  Serious: Yes (Hospitalization, Congenital Anomaly)
  Sender: FDA-Public Use
  Company Number: CA-OTSUKA-2018_035689

PATIENT

DRUGS (1)
  1. ABILIFY MAINTENA [Suspect]
     Active Substance: ARIPIPRAZOLE
     Indication: SCHIZOAFFECTIVE DISORDER
     Dosage: 300 MG, 4 WEEKLY
     Route: 064
     Dates: start: 20161031

REACTIONS (5)
  - Cyanosis neonatal [Unknown]
  - Dyspnoea [Unknown]
  - Congenital diaphragmatic hernia [Unknown]
  - Forceps delivery [Unknown]
  - Contusion [Unknown]
